FAERS Safety Report 7713913-X (Version None)
Quarter: 2011Q3

REPORT INFORMATION
  Report Type: 
  Country: None (occurrence: None)
  Receive Date: 20110826
  Receipt Date: 20110819
  Transmission Date: 20111222
  Serious: Yes (Other)
  Sender: FDA-Public Use
  Company Number: US-ALLERGAN-1111214US

PATIENT
  Age: 11 Year
  Sex: Female

DRUGS (1)
  1. CELLUVISC [Suspect]
     Indication: PRODUCT USED FOR UNKNOWN INDICATION
     Dosage: UNK
     Dates: start: 20110818

REACTIONS (1)
  - HYPERSENSITIVITY [None]
